FAERS Safety Report 15494678 (Version 1)
Quarter: 2018Q4

REPORT INFORMATION
  Report Type: Spontaneous
  Country: JP (occurrence: JP)
  Receive Date: 20181012
  Receipt Date: 20181012
  Transmission Date: 20190205
  Serious: Yes (Hospitalization, Other)
  Sender: FDA-Public Use
  Company Number: JP-UNICHEM PHARMACEUTICALS (USA) INC-UCM201810-000260

PATIENT
  Sex: Male
  Weight: 2 kg

DRUGS (4)
  1. ZONISAMIDE. [Concomitant]
     Active Substance: ZONISAMIDE
  2. DIVALPROEX SODIUM. [Suspect]
     Active Substance: DIVALPROEX SODIUM
  3. PYRIDOXAL  PHOSPHATE [Concomitant]
     Active Substance: PYRIDOXAL PHOSPHATE
  4. CLONAZEPAM. [Concomitant]
     Active Substance: CLONAZEPAM

REACTIONS (3)
  - Condition aggravated [Recovered/Resolved]
  - Therapy non-responder [Unknown]
  - Focal dyscognitive seizures [Recovered/Resolved]
